FAERS Safety Report 12752767 (Version 1)
Quarter: 2016Q3

REPORT INFORMATION
  Report Type: Spontaneous
  Country: JP (occurrence: JP)
  Receive Date: 20160916
  Receipt Date: 20160916
  Transmission Date: 20161109
  Serious: Yes (Hospitalization)
  Sender: FDA-Public Use
  Company Number: JP-ORION CORPORATION ORION PHARMA-ENTC2016-0478

PATIENT
  Age: 79 Year
  Sex: Male

DRUGS (3)
  1. MENESIT [Concomitant]
     Active Substance: CARBIDOPA\LEVODOPA
     Route: 065
  2. STALEVO [Suspect]
     Active Substance: CARBIDOPA\ENTACAPONE\LEVODOPA
     Indication: PARKINSON^S DISEASE
     Dosage: 100/10/100 MG
     Route: 048
  3. NEUPRO [Concomitant]
     Active Substance: ROTIGOTINE
     Route: 065

REACTIONS (4)
  - Wrong technique in product usage process [Unknown]
  - Product difficult to swallow [Unknown]
  - Pneumonia [Unknown]
  - Activities of daily living impaired [Unknown]

NARRATIVE: CASE EVENT DATE: 20160822
